FAERS Safety Report 6275619-6 (Version None)
Quarter: 2009Q3

REPORT INFORMATION
  Report Type: 
  Country: None (occurrence: None)
  Receive Date: 20090721
  Receipt Date: 20090709
  Transmission Date: 20100115
  Serious: Yes (Other)
  Sender: FDA-Public Use
  Company Number: GB-PFIZER INC-2009238323

PATIENT
  Age: 35 Year

DRUGS (1)
  1. LYRICA [Suspect]
     Dosage: 75 MG, 2X/DAY

REACTIONS (3)
  - AGGRESSION [None]
  - ANXIETY [None]
  - VIOLENCE-RELATED SYMPTOM [None]
